FAERS Safety Report 6686372-6 (Version None)
Quarter: 2010Q2

REPORT INFORMATION
  Report Type: 
  Country: None (occurrence: None)
  Receive Date: 20100419
  Receipt Date: 20100409
  Transmission Date: 20101027
  Serious: Yes (Hospitalization)
  Sender: FDA-Public Use
  Company Number: B0648141A

PATIENT
  Sex: Female

DRUGS (3)
  1. ACITRETIN [Suspect]
     Indication: DRUG USE FOR UNKNOWN INDICATION
     Route: 048
     Dates: start: 20050901, end: 20070701
  2. ERCEFURYL [Concomitant]
     Route: 065
  3. FLAGYL [Concomitant]
     Route: 065

REACTIONS (6)
  - ANAEMIA [None]
  - ARTERIAL THROMBOSIS [None]
  - GASTRIC MUCOSAL LESION [None]
  - GASTROINTESTINAL HAEMORRHAGE [None]
  - RECTAL HAEMORRHAGE [None]
  - SHOCK [None]
